FAERS Safety Report 12817422 (Version 1)
Quarter: 2016Q4

REPORT INFORMATION
  Report Type: Report from Study
  Country: US (occurrence: US)
  Receive Date: 20161006
  Receipt Date: 20161006
  Transmission Date: 20170207
  Serious: Yes (Other)
  Sender: FDA-Public Use
  Company Number: US-BEH-2016073768

PATIENT
  Sex: Female
  Weight: 2.61 kg

DRUGS (7)
  1. ALBUMINAR-5 [Suspect]
     Active Substance: ALBUMIN HUMAN
     Indication: PROPHYLAXIS
     Dosage: 157.4 ML, QMT
     Route: 064
     Dates: start: 20160303, end: 20160829
  2. ALBUMINAR-5 [Suspect]
     Active Substance: ALBUMIN HUMAN
     Dosage: 157.4 UNK, UNK
     Route: 064
     Dates: start: 20160303, end: 20160829
  3. CYTOGAM [Suspect]
     Active Substance: HUMAN CYTOMEGALOVIRUS IMMUNE GLOBULIN
     Indication: PROPHYLAXIS
     Dosage: 157.4 ML, QMT
     Route: 064
     Dates: start: 20160303, end: 20160829
  4. BLINDED ALBUMIN 5% [Suspect]
     Active Substance: ALBUMIN HUMAN
     Dosage: 157.4 UNK, UNK
     Route: 064
     Dates: start: 20160303, end: 20160829
  5. CYTOGAM [Suspect]
     Active Substance: HUMAN CYTOMEGALOVIRUS IMMUNE GLOBULIN
     Dosage: 157.4 UNK, UNK
     Route: 064
     Dates: start: 20160303, end: 20160829
  6. RHOGAM [Concomitant]
     Active Substance: HUMAN RHO(D) IMMUNE GLOBULIN
  7. BLINDED ALBUMIN 5% [Suspect]
     Active Substance: ALBUMIN HUMAN
     Indication: PROPHYLAXIS
     Dosage: 157.4 ML, QMT
     Route: 064
     Dates: start: 20160303, end: 20160829

REACTIONS (2)
  - Foetal exposure during pregnancy [Recovered/Resolved]
  - Premature baby [Recovered/Resolved]

NARRATIVE: CASE EVENT DATE: 20160303
